FAERS Safety Report 13922154 (Version 1)
Quarter: 2017Q3

REPORT INFORMATION
  Report Type: Spontaneous
  Country: DK (occurrence: DK)
  Receive Date: 20170830
  Receipt Date: 20170830
  Transmission Date: 20171127
  Serious: Yes (Hospitalization)
  Sender: FDA-Public Use
  Company Number: DK-CELGENEUS-DNK-2016096477

PATIENT

DRUGS (3)
  1. RHUGM-CSF [Concomitant]
     Indication: HIV INFECTION
     Route: 065
  2. VACC-4X [Concomitant]
     Indication: HIV INFECTION
     Route: 065
  3. ROMIDEPSIN [Suspect]
     Active Substance: ROMIDEPSIN
     Indication: HIV INFECTION
     Route: 041

REACTIONS (6)
  - Alcohol withdrawal syndrome [Unknown]
  - Alopecia [Not Recovered/Not Resolved]
  - Nausea [Recovered/Resolved]
  - Injection site erythema [Recovered/Resolved]
  - Injection site pruritus [Recovered/Resolved]
  - Fatigue [Recovered/Resolved]
